FAERS Safety Report 20465963 (Version 1)
Quarter: 2022Q1

REPORT INFORMATION
  Report Type: Report from Study
  Country: DE (occurrence: DE)
  Receive Date: 20220212
  Receipt Date: 20220212
  Transmission Date: 20220424
  Serious: Yes (Hospitalization)
  Sender: FDA-Public Use
  Company Number: DE-TAKEDA-2022TUS008590

PATIENT
  Age: 44 Year
  Weight: 110 kg

DRUGS (11)
  1. ANTIHEMOPHILIC FACTOR, PEGYLATED (MW 20000) HUMAN SEQUENCE RECOMBINANT [Suspect]
     Active Substance: ANTIHEMOPHILIC FACTOR, PEGYLATED (MW 20000) HUMAN SEQUENCE RECOMBINANT
     Indication: Product used for unknown indication
     Dosage: 4000 INTERNATIONAL UNIT
     Route: 042
     Dates: start: 20190729
  2. ANTIHEMOPHILIC FACTOR, PEGYLATED (MW 20000) HUMAN SEQUENCE RECOMBINANT [Suspect]
     Active Substance: ANTIHEMOPHILIC FACTOR, PEGYLATED (MW 20000) HUMAN SEQUENCE RECOMBINANT
     Indication: Product used for unknown indication
     Dosage: 4000 INTERNATIONAL UNIT
     Route: 042
     Dates: start: 20190729
  3. ANTIHEMOPHILIC FACTOR, PEGYLATED (MW 20000) HUMAN SEQUENCE RECOMBINANT [Suspect]
     Active Substance: ANTIHEMOPHILIC FACTOR, PEGYLATED (MW 20000) HUMAN SEQUENCE RECOMBINANT
     Indication: Product used for unknown indication
     Dosage: 4000 INTERNATIONAL UNIT
     Route: 042
     Dates: start: 20190729
  4. Covid-19 vaccine [Concomitant]
     Indication: Immunisation
     Dosage: 1 UNK
     Route: 030
     Dates: start: 20210609, end: 20210609
  5. Covid-19 vaccine [Concomitant]
     Dosage: 1 UNK
     Route: 030
     Dates: start: 20210714, end: 20210714
  6. ETORICOXIB [Concomitant]
     Active Substance: ETORICOXIB
     Indication: Analgesic therapy
     Dosage: 90 MILLIGRAM, QD
     Route: 048
     Dates: start: 20201126, end: 20201209
  7. METAMIZOLE [Concomitant]
     Active Substance: METAMIZOLE
     Indication: Analgesic therapy
     Dosage: 1 GRAM
     Route: 042
     Dates: start: 20201217, end: 20201220
  8. PANTOPRAZOLE SODIUM [Concomitant]
     Active Substance: PANTOPRAZOLE SODIUM
     Dosage: 40 MILLIGRAM, QD
     Route: 048
     Dates: start: 20201217, end: 20201220
  9. ACETAMINOPHEN [Concomitant]
     Active Substance: ACETAMINOPHEN
     Indication: Analgesic therapy
     Dosage: 1 GRAM
     Route: 042
     Dates: start: 20201217, end: 20201220
  10. CLARISCAN [Concomitant]
     Active Substance: GADOTERATE MEGLUMINE
     Dosage: 22 MILLILITER, QD
     Route: 042
     Dates: start: 20201114, end: 20201114
  11. CLARISCAN [Concomitant]
     Active Substance: GADOTERATE MEGLUMINE
     Dosage: 22 MILLILITER, QD
     Route: 042
     Dates: start: 20210514, end: 20210514

REACTIONS (1)
  - Synovitis [Recovering/Resolving]

NARRATIVE: CASE EVENT DATE: 20200401
